FAERS Safety Report 5071490-9 (Version None)
Quarter: 2006Q3

REPORT INFORMATION
  Report Type: 
  Country: None (occurrence: None)
  Receive Date: 20060803
  Receipt Date: 20060803
  Transmission Date: 20061208
  Serious: Yes (Other)
  Sender: FDA-Public Use
  Company Number: None

PATIENT
  Age: 15 Year
  Sex: Female

DRUGS (1)
  1. CORICIDIN HBP COUGH + COLD (CHLORPHENIRAMINE MAL / DEX TABLETS [Suspect]
     Dosage: ORAL
     Route: 048

REACTIONS (16)
  - ABNORMAL BEHAVIOUR [None]
  - AGITATION [None]
  - CONFABULATION [None]
  - CONFUSIONAL STATE [None]
  - DELIRIUM [None]
  - DISTURBANCE IN ATTENTION [None]
  - EUPHORIC MOOD [None]
  - EYE DISORDER [None]
  - HALLUCINATION [None]
  - INAPPROPRIATE AFFECT [None]
  - MALAISE [None]
  - NYSTAGMUS [None]
  - SOMNOLENCE [None]
  - SPEECH DISORDER [None]
  - TACHYCARDIA [None]
  - VOMITING [None]
